FAERS Safety Report 19921181 (Version 1)
Quarter: 2021Q4

REPORT INFORMATION
  Report Type: Spontaneous
  Country: CN (occurrence: CN)
  Receive Date: 20211006
  Receipt Date: 20211006
  Transmission Date: 20220303
  Serious: Yes (Hospitalization)
  Sender: FDA-Public Use
  Company Number: CN-BAXTER-2021BAX026680

PATIENT
  Age: 56 Year
  Sex: Female
  Weight: 44.3 kg

DRUGS (18)
  1. CYCLOPHOSPHAMIDE [Suspect]
     Active Substance: CYCLOPHOSPHAMIDE
     Indication: B-cell lymphoma
     Dosage: CYCLOPHOSPHAMIDE FOR INJECTION 1G + 0.9% SODIUM CHLORIDE INJECTION 500ML
     Route: 041
     Dates: start: 20190825, end: 20190825
  2. CYCLOPHOSPHAMIDE [Suspect]
     Active Substance: CYCLOPHOSPHAMIDE
     Dosage: CYCLOPHOSPHAMIDE FOR INJECTION 1G + 0.9% SODIUM CHLORIDE INJECTION 500ML?DOSE REINTRODUCED
     Route: 041
  3. SODIUM CHLORIDE [Suspect]
     Active Substance: SODIUM CHLORIDE
     Indication: Medication dilution
     Dosage: CYCLOPHOSPHAMIDE FOR INJECTION 1G + 0.9% SODIUM CHLORIDE INJECTION 500ML
     Route: 042
     Dates: start: 20190825, end: 20190825
  4. SODIUM CHLORIDE [Suspect]
     Active Substance: SODIUM CHLORIDE
     Dosage: CYCLOPHOSPHAMIDE FOR INJECTION 1G + 0.9% SODIUM CHLORIDE INJECTION 500ML\?DOSE REINTRODUCED
     Route: 042
  5. SODIUM CHLORIDE [Suspect]
     Active Substance: SODIUM CHLORIDE
     Dosage: VINORELBINE TARTRATE INJECTION 40MG + 0.9% SODIUM CHLORIDE INJECTION 125ML
     Route: 042
     Dates: start: 20190825, end: 20190825
  6. SODIUM CHLORIDE [Suspect]
     Active Substance: SODIUM CHLORIDE
     Dosage: VINORELBINE TARTRATE INJECTION 40MG + 0.9% SODIUM CHLORIDE INJECTION 125ML ?DOSE REINTRODUCED
     Route: 041
  7. SODIUM CHLORIDE [Suspect]
     Active Substance: SODIUM CHLORIDE
     Dosage: RITUXIMAB INJECTION 500MG + 0.9% SODIUM CHLORIDE INJECTION 600ML
     Route: 041
     Dates: start: 20190825, end: 20190825
  8. SODIUM CHLORIDE [Suspect]
     Active Substance: SODIUM CHLORIDE
     Dosage: RITUXIMAB INJECTION 500MG + 0.9% SODIUM CHLORIDE INJECTION 600ML?DOSE REINTRODUCED
     Route: 041
  9. DEXTROSE [Suspect]
     Active Substance: DEXTROSE
     Indication: Medication dilution
     Dosage: RITUXIMAB INJECTION 500MG + 0.9% SODIUM CHLORIDE INJECTION 600ML
     Route: 041
     Dates: start: 20190824, end: 20190824
  10. DEXTROSE [Suspect]
     Active Substance: DEXTROSE
     Dosage: RITUXIMAB INJECTION 500MG + 0.9% SODIUM CHLORIDE INJECTION 600ML?DOSE REINTRODUCED
     Route: 041
  11. EPIRUBICIN HYDROCHLORIDE [Suspect]
     Active Substance: EPIRUBICIN HYDROCHLORIDE
     Indication: B-cell lymphoma
     Dosage: EPIRUBICIN HYDROCHLORIDE FOR INJECTION 90MG + 5% GLUCOSE INJECTION 500ML
     Route: 041
     Dates: start: 20190825, end: 20190825
  12. EPIRUBICIN HYDROCHLORIDE [Suspect]
     Active Substance: EPIRUBICIN HYDROCHLORIDE
     Dosage: EPIRUBICIN HYDROCHLORIDE FOR INJECTION 90MG + 5% GLUCOSE INJECTION 500ML?DOSE REINTRODUCED
     Route: 041
  13. RITUXIMAB [Suspect]
     Active Substance: RITUXIMAB
     Indication: B-cell lymphoma
     Dosage: RITUXIMAB INJECTION 500MG + 0.9% SODIUM CHLORIDE INJECTION 600ML
     Route: 041
     Dates: start: 20190824, end: 20190824
  14. RITUXIMAB [Suspect]
     Active Substance: RITUXIMAB
     Dosage: RITUXIMAB INJECTION 500MG + 0.9% SODIUM CHLORIDE INJECTION 600ML?DOSE REINTRODUCED
     Route: 041
  15. PREDNISONE ACETATE [Suspect]
     Active Substance: PREDNISONE ACETATE
     Indication: B-cell lymphoma
     Dosage: FORM OF ADMIN : TABLET
     Route: 048
     Dates: start: 20190825, end: 20190829
  16. PREDNISONE ACETATE [Suspect]
     Active Substance: PREDNISONE ACETATE
     Dosage: FORM OF ADMIN : TABLET?DOSE REINTRODUCED
     Route: 048
  17. VINORELBINE TARTRATE [Suspect]
     Active Substance: VINORELBINE TARTRATE
     Indication: B-cell lymphoma
     Dosage: VINORELBINE TARTRATE INJECTION 40MG + 0.9% SODIUM CHLORIDE INJECTION 125ML
     Route: 041
     Dates: start: 20190825, end: 20190825
  18. VINORELBINE TARTRATE [Suspect]
     Active Substance: VINORELBINE TARTRATE
     Dosage: DOSE REINTRODUCED
     Route: 041

REACTIONS (1)
  - Myelosuppression [Recovering/Resolving]

NARRATIVE: CASE EVENT DATE: 20190829
